FAERS Safety Report 8231683-6 (Version None)
Quarter: 2012Q1

REPORT INFORMATION
  Report Type: 
  Country: None (occurrence: None)
  Receive Date: 20120320
  Receipt Date: 20110908
  Transmission Date: 20120608
  Serious: Yes (Death, Hospitalization, Other)
  Sender: FDA-Public Use
  Company Number: ES-023764

PATIENT
  Age: 70 Year
  Sex: Male

DRUGS (1)
  1. (CHLORAMBUCIL) [Suspect]
     Indication: CHRONIC LYMPHOCYTIC LEUKAEMIA
     Dosage: TABLET 42 MG    ORAL
     Route: 048
     Dates: start: 20110512, end: 20110808

REACTIONS (3)
  - HAEMOGLOBIN DECREASED [None]
  - RESPIRATORY TRACT INFECTION [None]
  - PLATELET COUNT DECREASED [None]
